FAERS Safety Report 17247060 (Version 2)
Quarter: 2020Q1

REPORT INFORMATION
  Report Type: Report from Study
  Country: US (occurrence: US)
  Receive Date: 20200108
  Receipt Date: 20200206
  Transmission Date: 20200409
  Serious: Yes (Hospitalization, Other)
  Sender: FDA-Public Use
  Company Number: US-PFIZER INC-2019344022

PATIENT
  Age: 61 Year
  Sex: Female
  Weight: 74 kg

DRUGS (3)
  1. XGEVA [Concomitant]
     Active Substance: DENOSUMAB
     Indication: BREAST CANCER METASTATIC
     Dosage: 120 MG, MONTHLY
  2. IBRANCE [Suspect]
     Active Substance: PALBOCICLIB
     Indication: BREAST CANCER METASTATIC
     Dosage: 125 MG, CYCLIC (DAILY, 21 DAYS ON, 7 DAYS OFF, DAILY 21 DAYS)
     Route: 048
     Dates: start: 20190805
  3. FASLODEX [Concomitant]
     Active Substance: FULVESTRANT
     Indication: BREAST CANCER METASTATIC
     Dosage: 500 MG, MONTHLY [250 MG EACH BUTTOCK MONTHLY INJECTION]

REACTIONS (17)
  - White blood cell count decreased [Unknown]
  - Dizziness [Recovered/Resolved]
  - Asthenia [Unknown]
  - Dyspnoea [Recovered/Resolved]
  - Pneumonia [Recovering/Resolving]
  - Leukopenia [Not Recovered/Not Resolved]
  - Pain [Recovering/Resolving]
  - Inflammatory pain [Recovering/Resolving]
  - Skin discolouration [Recovered/Resolved]
  - Constipation [Recovering/Resolving]
  - Oropharyngeal pain [Unknown]
  - Vomiting [Unknown]
  - Candida infection [Unknown]
  - Headache [Recovered/Resolved]
  - Fatigue [Unknown]
  - Dry mouth [Unknown]
  - Productive cough [Recovered/Resolved]

NARRATIVE: CASE EVENT DATE: 2019
